FAERS Safety Report 23119305 (Version 1)
Quarter: 2023Q4

REPORT INFORMATION
  Report Type: Spontaneous
  Country: CN (occurrence: CN)
  Receive Date: 20231028
  Receipt Date: 20231028
  Transmission Date: 20240110
  Serious: Yes (Other)
  Sender: FDA-Public Use
  Company Number: None

PATIENT
  Age: 14 Year
  Sex: Male
  Weight: 65 kg

DRUGS (5)
  1. MANNITOL [Suspect]
     Active Substance: MANNITOL
     Indication: Swelling
     Dosage: 250 ML (MILLILITRE), ONCE DAILY (DOSAGE FORM: INJECTION)
     Route: 041
     Dates: start: 20231012, end: 20231014
  2. PROPACETAMOL HYDROCHLORIDE [Suspect]
     Active Substance: PROPACETAMOL HYDROCHLORIDE
     Indication: Analgesic therapy
     Dosage: 2 G (GRAM), TWICE DAILY (DOSAGE FORM: POWDER INJECTION) DILUTED WITH 100 ML SODIUM CHLORIDE
     Route: 041
     Dates: start: 20231012, end: 20231014
  3. POLYPEPTIDES [Suspect]
     Active Substance: POLYPEPTIDES
     Indication: Lumbar vertebral fracture
     Dosage: 24 MG (MILLIGRAM), ONCE DAILY (DOSAGE FORM: POWDER INJECTION)  DILUTED WITH 250 ML SODIUM CHLORIDE
     Route: 041
     Dates: start: 20231012, end: 20231014
  4. SODIUM CHLORIDE [Suspect]
     Active Substance: SODIUM CHLORIDE
     Indication: Medication dilution
     Dosage: 250 ML (MILLILITRE), ONCE DAILY USED TO DILUTE 24 MG CERVUS AND CUCUMIS POLYPEPTIDE
     Route: 041
     Dates: start: 20231012, end: 20231014
  5. SODIUM CHLORIDE [Suspect]
     Active Substance: SODIUM CHLORIDE
     Dosage: 100 ML (MILLILITRE), TWICE DAILY USED TO DILUTE 2 G PROPACETAMOL HYDROCHLORIDE
     Route: 041
     Dates: start: 20231012, end: 20231014

REACTIONS (2)
  - Rash [Recovered/Resolved]
  - Pruritus [Recovered/Resolved]

NARRATIVE: CASE EVENT DATE: 20231014
